FAERS Safety Report 18632827 (Version 1)
Quarter: 2020Q4

REPORT INFORMATION
  Report Type: Spontaneous
  Country: US (occurrence: US)
  Receive Date: 20201217
  Receipt Date: 20201217
  Transmission Date: 20210114
  Serious: Yes (Death, Other)
  Sender: FDA-Public Use
  Company Number: None

PATIENT
  Age: 81 Year
  Sex: Female
  Weight: 80.5 kg

DRUGS (2)
  1. REMDESIVIR. [Concomitant]
     Active Substance: REMDESIVIR
     Dates: start: 20201207, end: 20201211
  2. BARICITINIB. [Suspect]
     Active Substance: BARICITINIB
     Indication: COVID-19
     Route: 048
     Dates: start: 20201208, end: 20201212

REACTIONS (3)
  - Lymphocyte count decreased [None]
  - Renal impairment [None]
  - Hyperkalaemia [None]

NARRATIVE: CASE EVENT DATE: 20201215
